FAERS Safety Report 17305693 (Version 1)
Quarter: 2020Q1

REPORT INFORMATION
  Report Type: Spontaneous
  Country: None (occurrence: JP)
  Receive Date: 20200123
  Receipt Date: 20200123
  Transmission Date: 20200409
  Serious: Yes (Hospitalization)
  Sender: FDA-Public Use
  Company Number: JP-ORION CORPORATION ORION PHARMA-ENT 2020-0004

PATIENT
  Age: 74 Year
  Sex: Female

DRUGS (6)
  1. COMTAN [Suspect]
     Active Substance: ENTACAPONE
     Indication: PARKINSON^S DISEASE
     Dosage: BID (10 AND 14 O CLOCK)
     Route: 048
  2. SELEGILIN [Concomitant]
     Active Substance: SELEGILINE
     Dosage: AFTER BREAKFAST (14TH HOSPITAL DAY)
     Route: 065
  3. SELEGILIN [Concomitant]
     Active Substance: SELEGILINE
     Indication: PARKINSONIAN GAIT
     Dosage: AFTER BREAKFAST (8TH HOSPITAL DAY)
     Route: 065
  4. CARBIDOPA-LEVODOPA [Suspect]
     Active Substance: CARBIDOPA\LEVODOPA
     Dosage: 18TH HOSPITAL DAY
     Route: 048
  5. ROPINIROLE HYDROCHLORIDE. [Suspect]
     Active Substance: ROPINIROLE HYDROCHLORIDE
     Indication: PARKINSON^S DISEASE
     Dosage: AFTER BREAKFAST
     Route: 048
  6. CARBIDOPA-LEVODOPA [Suspect]
     Active Substance: CARBIDOPA\LEVODOPA
     Indication: PARKINSON^S DISEASE
     Dosage: 10QD (DISSOLVED WITH 500 ML OF LEMON WATER AND ADMINISTERED BY 50 ML AT 7, 8, 9, 10, 12, 13, 14, 16,
     Route: 048

REACTIONS (3)
  - On and off phenomenon [Unknown]
  - Dyskinesia [Recovering/Resolving]
  - Parkinsonian gait [Unknown]
